FAERS Safety Report 8150994-6 (Version None)
Quarter: 2012Q1

REPORT INFORMATION
  Report Type: 
  Country: None (occurrence: None)
  Receive Date: 20120220
  Receipt Date: 20120207
  Transmission Date: 20120608
  Serious: Yes (Other)
  Sender: FDA-Public Use
  Company Number: US-ELI_LILLY_AND_COMPANY-US201104002035

PATIENT
  Sex: Female

DRUGS (3)
  1. MIACALCIN [Concomitant]
  2. FORTEO [Suspect]
     Dosage: 20 UG, QD
  3. FORTEO [Suspect]
     Indication: OSTEOPOROSIS
     Dosage: 20 UG, QD
     Route: 065
     Dates: start: 20110401, end: 20110401

REACTIONS (9)
  - DIZZINESS [None]
  - ASTHENIA [None]
  - INTENTIONAL DRUG MISUSE [None]
  - SHOULDER ARTHROPLASTY [None]
  - PROSTHESIS IMPLANTATION [None]
  - RESPIRATORY DISORDER [None]
  - ABDOMINAL PAIN UPPER [None]
  - CHEST PAIN [None]
  - BONE PAIN [None]
